FAERS Safety Report 9458607 (Version 1)
Quarter: 2013Q3

REPORT INFORMATION
  Report Type: Spontaneous
  Country: US (occurrence: None)
  Receive Date: 20130813
  Receipt Date: 20130813
  Transmission Date: 20140515
  Serious: Yes (Other)
  Sender: FDA-Public Use
  Company Number: None

PATIENT
  Age: 39 Year
  Sex: Female

DRUGS (1)
  1. ICLUSIG [Suspect]
     Dosage: 45MG QD ORAL
     Route: 048
     Dates: start: 20130524

REACTIONS (1)
  - Generalised erythema [None]
